FAERS Safety Report 6192077-0 (Version None)
Quarter: 2009Q2

REPORT INFORMATION
  Report Type: 
  Country: None (occurrence: None)
  Receive Date: 20090515
  Receipt Date: 20090510
  Transmission Date: 20091009
  Serious: Yes (Hospitalization)
  Sender: FDA-Public Use
  Company Number: CA-ELI_LILLY_AND_COMPANY-CA200905002161

PATIENT
  Age: 71 Year
  Sex: Female

DRUGS (13)
  1. FORTEO [Suspect]
     Indication: OSTEOPOROSIS
     Dosage: 20 UG, DAILY (1/D)
     Route: 058
     Dates: start: 20080704
  2. METFORMIN HCL [Concomitant]
     Dosage: 500 MG, 2/D
  3. INDAPAMIDE [Concomitant]
     Dosage: 1.25 MG, 2/D
  4. PERINDOPRIL [Concomitant]
     Dosage: 2 MG, DAILY (1/D)
  5. ASPIRIN [Concomitant]
     Dosage: 81 MG, DAILY (1/D)
  6. ATORVASTATIN [Concomitant]
     Dosage: 20 MG, EACH EVENING
  7. DIAMICRON [Concomitant]
     Dosage: 60 MG, EACH MORNING
  8. CELEXA [Concomitant]
     Dosage: 10 MG, EACH EVENING
  9. ARICEPT [Concomitant]
     Dosage: 5 MG, EACH EVENING
  10. PARIET [Concomitant]
     Dosage: 20 MG, DAILY (1/D)
  11. CALCIUM [Concomitant]
     Dosage: 500 MG, 2/D
  12. VITAMIN D [Concomitant]
     Dosage: 2000 IU, DAILY (1/D)
  13. VITAMIN B-12 [Concomitant]
     Dosage: 1000 UG, DAILY (1/D)

REACTIONS (3)
  - FALL [None]
  - HIP FRACTURE [None]
  - MUSCULAR WEAKNESS [None]
